FAERS Safety Report 8286870-8 (Version None)
Quarter: 2012Q2

REPORT INFORMATION
  Report Type: 
  Country: None (occurrence: None)
  Receive Date: 20120416
  Receipt Date: 20120409
  Transmission Date: 20120825
  Serious: Yes (Life-Threatening, Hospitalization)
  Sender: FDA-Public Use
  Company Number: US-SANOFI-AVENTIS-2012SA024813

PATIENT
  Sex: Female

DRUGS (8)
  1. MULTAQ [Suspect]
     Route: 048
  2. VITAMIN D [Concomitant]
  3. LOPRESSOR [Suspect]
     Route: 065
  4. ASPIRIN [Concomitant]
  5. COLACE [Concomitant]
  6. VITAMIN B COMPLEX CAP [Concomitant]
  7. LASIX [Suspect]
     Route: 065
  8. COUMADIN [Concomitant]

REACTIONS (3)
  - ATRIAL FIBRILLATION [None]
  - BLOOD POTASSIUM INCREASED [None]
  - HEART RATE DECREASED [None]
